FAERS Safety Report 9915802 (Version 3)
Quarter: 2014Q2

REPORT INFORMATION
  Report Type: Spontaneous
  Country: SE (occurrence: None)
  Receive Date: 20140218
  Receipt Date: 20140618
  Transmission Date: 20141212
  Serious: No
  Sender: FDA-Public Use
  Company Number: 2014MPI00086

PATIENT
  Sex: Female
  Weight: 85 kg

DRUGS (1)
  1. ADCETRIS (BRENTUXIMAB VEDOTIN) INJECTION [Suspect]
     Indication: HODGKIN^S DISEASE
     Dosage: 1.2 MG/KG, UNK, INTRAVENOUS
     Route: 042
     Dates: start: 20131211, end: 20131223

REACTIONS (3)
  - Pneumocystis jirovecii pneumonia [None]
  - Cough [None]
  - Pruritus [None]
